FAERS Safety Report 18182921 (Version 2)
Quarter: 2021Q1

REPORT INFORMATION
  Report Type: Spontaneous
  Country: US (occurrence: US)
  Receive Date: 20200821
  Receipt Date: 20210108
  Transmission Date: 20210419
  Serious: Yes (Other)
  Sender: FDA-Public Use
  Company Number: US-GILEAD-2020-0491159

PATIENT
  Age: 44 Year
  Sex: Male

DRUGS (62)
  1. TRUVADA [Suspect]
     Active Substance: EMTRICITABINE\TENOFOVIR DISOPROXIL FUMARATE
     Dosage: UNK
     Route: 048
     Dates: start: 20110602, end: 20170313
  2. ABACAVIR. [Concomitant]
     Active Substance: ABACAVIR
     Indication: HIV INFECTION
  3. DOXYCYCLINE HYCLATE. [Concomitant]
     Active Substance: DOXYCYCLINE HYCLATE
  4. EPIVIR\LAMIVUDINE [Concomitant]
  5. FLUCONAZOLE. [Concomitant]
     Active Substance: FLUCONAZOLE
  6. FUROSEMIDE. [Concomitant]
     Active Substance: FUROSEMIDE
  7. ISOSORB MONO [Concomitant]
     Active Substance: ISOSORBIDE MONONITRATE
  8. LANTUS SOLOSTAR PEN INJ [Concomitant]
  9. NITROFURANTOIN MONOHYDRATE MACROCRYSTALS [Concomitant]
     Active Substance: NITROFURANTOIN\NITROFURANTOIN MONOHYDRATE
  10. NITROGLYCERIN. [Concomitant]
     Active Substance: NITROGLYCERIN
  11. PREZISTA [Concomitant]
     Active Substance: DARUNAVIR ETHANOLATE
     Indication: HIV INFECTION
  12. CEFDINIR OTIC [Concomitant]
  13. CIPROFLOXACIN. [Concomitant]
     Active Substance: CIPROFLOXACIN
  14. DIAZEPAM. [Concomitant]
     Active Substance: DIAZEPAM
  15. HYDROCODONE/ACETAMINOPHEN [Concomitant]
     Active Substance: ACETAMINOPHEN\HYDROCODONE
  16. LEVOFLOXACIN. [Concomitant]
     Active Substance: LEVOFLOXACIN
  17. SMZ?TMP DS [Concomitant]
     Active Substance: SULFAMETHOXAZOLE\TRIMETHOPRIM
  18. NORVIR [Concomitant]
     Active Substance: RITONAVIR
     Indication: HIV INFECTION
  19. AMOX?CLAV [Concomitant]
     Active Substance: AMOXICILLIN\CLAVULANATE POTASSIUM
  20. AZITHROMYCIN ANHYDROUS. [Concomitant]
     Active Substance: AZITHROMYCIN ANHYDROUS
  21. B?D INSULIN SYRINGES [Concomitant]
  22. CLOTRIMAZOLE. [Concomitant]
     Active Substance: CLOTRIMAZOLE
  23. DICLOFENAC [Concomitant]
     Active Substance: DICLOFENAC
  24. LISINOPRIL. [Concomitant]
     Active Substance: LISINOPRIL
  25. METOPROLOL TARTRAS [Concomitant]
     Active Substance: METOPROLOL TARTRATE
  26. OXYBUTYNIN. [Concomitant]
     Active Substance: OXYBUTYNIN CHLORIDE
  27. PAROXETINE. [Concomitant]
     Active Substance: PAROXETINE
  28. DESCOVY [Concomitant]
     Active Substance: EMTRICITABINE\TENOFOVIR ALAFENAMIDE FUMARATE
     Indication: HIV INFECTION
  29. KALETRA [Concomitant]
     Active Substance: LOPINAVIR\RITONAVIR
     Indication: HIV INFECTION
  30. PREZCOBIX [Concomitant]
     Active Substance: COBICISTAT\DARUNAVIR ETHANOLATE
     Indication: HIV INFECTION
  31. HUMALOG [Concomitant]
     Active Substance: INSULIN LISPRO
  32. HYOSCYAMINE. [Concomitant]
     Active Substance: HYOSCYAMINE
  33. MORPHINE SULF [Concomitant]
     Active Substance: MORPHINE SULFATE
  34. AMLODIPINE [Concomitant]
     Active Substance: AMLODIPINE BESYLATE
  35. FENTANYL. [Concomitant]
     Active Substance: FENTANYL
  36. METHYLPREDNISOLONE. [Concomitant]
     Active Substance: METHYLPREDNISOLONE
  37. NOVOLOG U [Concomitant]
  38. POTASSIUM CLORIDE [Concomitant]
  39. ISENTRESS [Concomitant]
     Active Substance: RALTEGRAVIR POTASSIUM
     Indication: HIV INFECTION
  40. AMOXICILLIN. [Concomitant]
     Active Substance: AMOXICILLIN
  41. ATORVASTATIN [Concomitant]
     Active Substance: ATORVASTATIN
  42. ONDANSETRON [Concomitant]
     Active Substance: ONDANSETRON
  43. PREDNISONE. [Concomitant]
     Active Substance: PREDNISONE
  44. PROMETHAZINE [Concomitant]
     Active Substance: PROMETHAZINE HYDROCHLORIDE
  45. TAMSULOSIN [Concomitant]
     Active Substance: TAMSULOSIN
  46. ATRIPLA [Suspect]
     Active Substance: EFAVIRENZ\EMTRICITABINE\TENOFOVIR DISOPROXIL FUMARATE
     Indication: HIV INFECTION
     Dosage: UNK
     Route: 048
     Dates: start: 2010
  47. TIVICAY [Concomitant]
     Active Substance: DOLUTEGRAVIR SODIUM
  48. CLONIDINE. [Concomitant]
     Active Substance: CLONIDINE
  49. FINASTERIDE. [Concomitant]
     Active Substance: FINASTERIDE
  50. FOLIC ACID. [Concomitant]
     Active Substance: FOLIC ACID
  51. GABAPENTIN. [Concomitant]
     Active Substance: GABAPENTIN
  52. HALOPERIDOL. [Concomitant]
     Active Substance: HALOPERIDOL
  53. METOCLOPRAMIDE. [Concomitant]
     Active Substance: METOCLOPRAMIDE
  54. PROAIR HFA AER [Concomitant]
  55. TRUVADA [Suspect]
     Active Substance: EMTRICITABINE\TENOFOVIR DISOPROXIL FUMARATE
     Indication: HIV INFECTION
     Dosage: UNK
     Route: 048
     Dates: start: 2010
  56. EPZICOM [Concomitant]
     Active Substance: ABACAVIR SULFATE\LAMIVUDINE
     Indication: HIV INFECTION
  57. ZIAGEN [Concomitant]
     Active Substance: ABACAVIR SULFATE
     Indication: HIV INFECTION
  58. IPRATROPIUM/ALB [Concomitant]
  59. MAG OXIDE [Concomitant]
     Active Substance: MAGNESIUM OXIDE
  60. MEGESTROL ACETATE. [Concomitant]
     Active Substance: MEGESTROL ACETATE
  61. PANTOPRAZOLE SODIUM. [Concomitant]
     Active Substance: PANTOPRAZOLE SODIUM
  62. PHENAZOPYRIDINE. [Concomitant]
     Active Substance: PHENAZOPYRIDINE

REACTIONS (15)
  - Bone density decreased [Recovered/Resolved]
  - Emotional distress [Unknown]
  - Anxiety [Unknown]
  - Depression [Recovered/Resolved]
  - Calcium deficiency [Unknown]
  - Blood creatinine increased [Unknown]
  - Glomerular filtration rate decreased [Unknown]
  - Renal injury [Unknown]
  - Chronic kidney disease [Recovered/Resolved]
  - Vitamin D deficiency [Unknown]
  - Osteoporosis [Unknown]
  - Renal failure [Recovered/Resolved]
  - Anhedonia [Unknown]
  - Pain [Unknown]
  - Renal impairment [Recovered/Resolved]

NARRATIVE: CASE EVENT DATE: 201803
